FAERS Safety Report 7768312-1 (Version None)
Quarter: 2011Q3

REPORT INFORMATION
  Report Type: 
  Country: None (occurrence: None)
  Receive Date: 20110922
  Receipt Date: 20110304
  Transmission Date: 20111222
  Serious: No
  Sender: FDA-Public Use
  Company Number: US-ASTRAZENECA-2011SE12171

PATIENT
  Age: 55 Year
  Sex: Female
  Weight: 56.2 kg

DRUGS (6)
  1. SEROQUEL XR [Suspect]
     Route: 048
     Dates: start: 20110303
  2. SEROQUEL XR [Suspect]
     Indication: DEPRESSION
     Route: 048
     Dates: start: 20090101
  3. SEROQUEL XR [Suspect]
     Indication: ANXIETY
     Route: 048
     Dates: start: 20090101
  4. SEROQUEL XR [Suspect]
     Route: 048
     Dates: start: 20110303
  5. CELEXA [Concomitant]
     Indication: DEPRESSION
  6. XANAX [Concomitant]
     Indication: ANXIETY

REACTIONS (3)
  - INCORRECT DOSE ADMINISTERED [None]
  - TACHYPHRENIA [None]
  - INITIAL INSOMNIA [None]
